FAERS Safety Report 12410473 (Version 1)
Quarter: 2016Q2

REPORT INFORMATION
  Report Type: Report from Study
  Country: FR (occurrence: FR)
  Receive Date: 20160527
  Receipt Date: 20160527
  Transmission Date: 20160815
  Serious: Yes (Hospitalization)
  Sender: FDA-Public Use
  Company Number: FR-ROCHE-1684435

PATIENT
  Age: 81 Year
  Sex: Male
  Weight: 110 kg

DRUGS (11)
  1. ATEZOLIZUMAB [Suspect]
     Active Substance: ATEZOLIZUMAB
     Indication: BLADDER TRANSITIONAL CELL CARCINOMA
     Dosage: THE DATE OF LAST DOSE PRIOR TO EVENTS WASON 03/DEC/2015.?CYCLE 10.
     Route: 042
     Dates: start: 20150529, end: 20151224
  2. ACTRAPID [Concomitant]
     Active Substance: INSULIN HUMAN
     Indication: DIABETES MELLITUS
     Route: 058
     Dates: start: 20151214
  3. INEXIUM [Concomitant]
     Active Substance: ESOMEPRAZOLE
     Indication: COLITIS
     Route: 048
     Dates: start: 20151124, end: 20160121
  4. MOVIPREP [Concomitant]
     Active Substance: ASCORBIC ACID\POLYETHYLENE GLYCOL 3350\POTASSIUM CHLORIDE\SODIUM ASCORBATE\SODIUM CHLORIDE\SODIUM SULFATE
     Dosage: 2 OTHER
     Route: 048
     Dates: start: 20151209, end: 20151209
  5. SODIUM BICARBONATE. [Concomitant]
     Active Substance: SODIUM BICARBONATE
     Indication: MUCOSAL INFLAMMATION
     Route: 050
     Dates: start: 20150527
  6. PENTASA [Concomitant]
     Active Substance: MESALAMINE
     Indication: ENTEROCOLITIS HAEMORRHAGIC
     Route: 054
     Dates: start: 20151215, end: 20151219
  7. METHYLPREDNISOLONE. [Concomitant]
     Active Substance: METHYLPREDNISOLONE
     Route: 042
     Dates: start: 20151214, end: 20151225
  8. KENZEN [Concomitant]
     Active Substance: CANDESARTAN
     Indication: HYPERTENSION
     Route: 048
     Dates: start: 2011
  9. CARDENSIEL [Concomitant]
     Active Substance: BISOPROLOL FUMARATE
     Indication: HYPERTENSION
     Route: 048
     Dates: start: 2011
  10. FIVASA (FRANCE) [Concomitant]
     Indication: ENTEROCOLITIS HAEMORRHAGIC
     Route: 048
     Dates: start: 20151215, end: 20151219
  11. METHYLPREDNISOLONE. [Concomitant]
     Active Substance: METHYLPREDNISOLONE
     Route: 042
     Dates: start: 20151214, end: 20151231

REACTIONS (2)
  - Hyperglycaemia [Recovered/Resolved]
  - Autoimmune colitis [Unknown]

NARRATIVE: CASE EVENT DATE: 20151124
